FAERS Safety Report 24451198 (Version 1)
Quarter: 2024Q4

REPORT INFORMATION
  Report Type: Spontaneous
  Country: US (occurrence: US)
  Receive Date: 20241017
  Receipt Date: 20241017
  Transmission Date: 20250115
  Serious: No
  Sender: MYLAN
  Company Number: US-MYLANLABS-2024M1092216

PATIENT
  Sex: Female
  Weight: 97.52 kg

DRUGS (1)
  1. LIDOCAINE PATCH [Suspect]
     Active Substance: LIDOCAINE
     Indication: Pain
     Dosage: 5 PERCENT, QD (ONE TO THREE PATCHES EVERY 12 HOURS ONCE A DAY)
     Route: 003
     Dates: start: 202409

REACTIONS (2)
  - Product adhesion issue [Unknown]
  - Off label use [Unknown]
